FAERS Safety Report 21908378 (Version 1)
Quarter: 2023Q1

REPORT INFORMATION
  Report Type: Spontaneous
  Country: DE (occurrence: DE)
  Receive Date: 20230125
  Receipt Date: 20230125
  Transmission Date: 20230418
  Serious: Yes (Hospitalization, Other)
  Sender: FDA-Public Use
  Company Number: None

PATIENT
  Age: 38 Year
  Sex: Female

DRUGS (5)
  1. PROGESTERONE [Suspect]
     Active Substance: PROGESTERONE
     Indication: Assisted reproductive technology
     Dosage: FORMULATION: VAGINAL CAPSULE, SOFT
     Route: 065
  2. FOLLITROPIN BETA [Suspect]
     Active Substance: FOLLITROPIN BETA
     Indication: Assisted reproductive technology
     Dosage: UNK
     Route: 065
  3. FOLLITROPIN BETA [Suspect]
     Active Substance: FOLLITROPIN BETA
  4. NAFARELIN ACETATE [Suspect]
     Active Substance: NAFARELIN ACETATE
     Indication: Assisted reproductive technology
     Dosage: UNK
     Route: 065
  5. CHORIOGONADOTROPIN ALFA [Suspect]
     Active Substance: CHORIOGONADOTROPIN ALFA
     Indication: Assisted reproductive technology
     Dosage: UNK
     Route: 065

REACTIONS (1)
  - Oophoritis [Recovered/Resolved]

NARRATIVE: CASE EVENT DATE: 20221229
